FAERS Safety Report 13248533 (Version 1)
Quarter: 2017Q1

REPORT INFORMATION
  Report Type: Spontaneous
  Country: US (occurrence: US)
  Receive Date: 20170218
  Receipt Date: 20170218
  Transmission Date: 20170428
  Serious: No
  Sender: FDA-Public Use
  Company Number: US-ALLERGAN-1659110US

PATIENT
  Sex: Female
  Weight: 73.47 kg

DRUGS (6)
  1. RESTASIS [Suspect]
     Active Substance: CYCLOSPORINE
     Indication: DRY EYE
     Dosage: 2 GTT, BID
     Route: 047
     Dates: start: 20151103, end: 201605
  2. LITHIUM. [Suspect]
     Active Substance: LITHIUM
     Indication: DEPRESSION
     Dosage: 150 MG, QHS
     Route: 048
     Dates: start: 201510
  3. GABAPENTIN. [Suspect]
     Active Substance: GABAPENTIN
     Indication: DRUG DEPENDENCE
     Dosage: 300 MG, QHS
     Dates: start: 201504
  4. OLOPATADINE [Concomitant]
     Active Substance: OLOPATADINE
     Indication: HYPERSENSITIVITY
  5. LAMICTAL [Suspect]
     Active Substance: LAMOTRIGINE
     Dosage: 75 MG, QD
     Dates: start: 201501
  6. AFRIN [Concomitant]
     Active Substance: OXYMETAZOLINE

REACTIONS (11)
  - Depression [Recovered/Resolved]
  - Cataract [Unknown]
  - Sinusitis [Unknown]
  - Myopia [Unknown]
  - Drug dose omission [Unknown]
  - Myalgia [Recovered/Resolved]
  - Arthralgia [Recovered/Resolved]
  - Drug interaction [Unknown]
  - Pain [Recovered/Resolved]
  - Eye pain [Recovered/Resolved]
  - Astigmatism [Unknown]
